FAERS Safety Report 18881232 (Version 1)
Quarter: 2021Q1

REPORT INFORMATION
  Report Type: Spontaneous
  Country: US (occurrence: US)
  Receive Date: 20210211
  Receipt Date: 20210211
  Transmission Date: 20210420
  Serious: Yes (Other)
  Sender: FDA-Public Use
  Company Number: US-PFIZER INC-2021106448

PATIENT
  Age: 62 Year
  Sex: Male

DRUGS (3)
  1. ALPRAZOLAM. [Suspect]
     Active Substance: ALPRAZOLAM
     Indication: HEADACHE
  2. ALPRAZOLAM. [Suspect]
     Active Substance: ALPRAZOLAM
     Indication: ANXIETY DISORDER
  3. ALPRAZOLAM. [Suspect]
     Active Substance: ALPRAZOLAM
     Indication: MIGRAINE
     Dosage: 1 MG, 3X/DAY

REACTIONS (14)
  - Heart rate abnormal [Unknown]
  - Tremor [Unknown]
  - Drug withdrawal syndrome [Unknown]
  - Intentional product use issue [Unknown]
  - Vomiting [Unknown]
  - Sleep disorder [Unknown]
  - Renal neoplasm [Unknown]
  - Hyperhidrosis [Unknown]
  - Cold sweat [Unknown]
  - Incorrect product administration duration [Unknown]
  - Memory impairment [Unknown]
  - Hypertension [Unknown]
  - Mental impairment [Unknown]
  - Abdominal pain upper [Unknown]
